FAERS Safety Report 9490009 (Version 2)
Quarter: 2013Q4

REPORT INFORMATION
  Report Type: Spontaneous
  Country: IT (occurrence: IT)
  Receive Date: 20130829
  Receipt Date: 20131028
  Transmission Date: 20140711
  Serious: Yes (Life-Threatening)
  Sender: FDA-Public Use
  Company Number: IT-BRISTOL-MYERS SQUIBB COMPANY-19218387

PATIENT
  Age: 58 Year
  Sex: Female

DRUGS (1)
  1. PACLITAXEL [Suspect]
     Indication: BREAST CANCER
     Dosage: INFUSION SOLUTION
     Route: 042
     Dates: start: 20130312

REACTIONS (2)
  - Bronchospasm [Recovered/Resolved]
  - Dyspnoea [Recovered/Resolved]
